FAERS Safety Report 24257217 (Version 1)
Quarter: 2024Q3

REPORT INFORMATION
  Report Type: Spontaneous
  Country: US (occurrence: US)
  Receive Date: 20240828
  Receipt Date: 20240828
  Transmission Date: 20241017
  Serious: Yes (Hospitalization, Disabling)
  Sender: AMGEN
  Company Number: US-AMGEN-USASP2024166805

PATIENT
  Age: 53 Year
  Sex: Male

DRUGS (2)
  1. SENSIPAR [Suspect]
     Active Substance: CINACALCET HYDROCHLORIDE
     Indication: Hyperparathyroidism primary
     Dosage: 30 MILLIGRAM, BID BY MOUTH
     Route: 048
     Dates: start: 2024
  2. SENSIPAR [Suspect]
     Active Substance: CINACALCET HYDROCHLORIDE
     Indication: Hypercalcaemia

REACTIONS (1)
  - Amyotrophic lateral sclerosis [Not Recovered/Not Resolved]
